FAERS Safety Report 9502916 (Version 1)
Quarter: 2013Q3

REPORT INFORMATION
  Report Type: Spontaneous
  Country: BR (occurrence: BR)
  Receive Date: 20130906
  Receipt Date: 20130906
  Transmission Date: 20140515
  Serious: Yes (Other)
  Sender: FDA-Public Use
  Company Number: PHHY2013BR097491

PATIENT
  Age: 34 Year
  Sex: Male
  Weight: 75 kg

DRUGS (12)
  1. RITALIN LA [Suspect]
     Indication: ATTENTION DEFICIT/HYPERACTIVITY DISORDER
     Dosage: 20 MG, UNK
     Dates: start: 201105
  2. RITALIN LA [Suspect]
     Indication: IMPULSIVE BEHAVIOUR
     Dosage: 20 MG, UNK
     Dates: start: 2011
  3. RITALINA [Suspect]
     Indication: ATTENTION DEFICIT/HYPERACTIVITY DISORDER
     Dosage: 10 MG, UNK
  4. RITALINA [Suspect]
     Indication: IMPULSIVE BEHAVIOUR
     Dosage: 10 MG, UNK
     Dates: end: 201304
  5. CONCERTA [Suspect]
     Dosage: ONCE A DAY
     Dates: start: 2012, end: 2012
  6. RIVOTRIL [Suspect]
     Dosage: 40 DRP, QD
     Route: 048
  7. LEXOTAN [Suspect]
     Dosage: 2 DF, QD
     Route: 048
  8. FRONTAL [Suspect]
     Dosage: 0.5 MG, QD
     Route: 048
  9. MULTI-VIT [Suspect]
     Dosage: 1 DF, QD
     Route: 048
  10. VENVANSE [Suspect]
     Dosage: 70 MG, SINGLE DOSE
     Dates: start: 201304
  11. VENVANSE [Suspect]
     Dosage: 50MG ONCE A DAY
     Dates: start: 201304
  12. VENVANSE [Suspect]
     Dosage: 30MG TWO TIMES A DAY
     Dates: start: 201304, end: 201308

REACTIONS (6)
  - Gait disturbance [Recovered/Resolved]
  - Pain [Recovered/Resolved]
  - Burnout syndrome [Recovered/Resolved]
  - Fatigue [Recovered/Resolved]
  - Anxiety [Recovered/Resolved]
  - Impulsive behaviour [Recovered/Resolved]
